FAERS Safety Report 16184112 (Version 1)
Quarter: 2019Q2

REPORT INFORMATION
  Report Type: Spontaneous
  Country: US (occurrence: US)
  Receive Date: 20190411
  Receipt Date: 20190411
  Transmission Date: 20190711
  Serious: Yes (Disabling, Other)
  Sender: FDA-Public Use
  Company Number: US-MYLANLABS-2019M1033616

PATIENT
  Age: 62 Year
  Sex: Female

DRUGS (1)
  1. DEXAMETHASONE. [Suspect]
     Active Substance: DEXAMETHASONE
     Indication: SCIATICA
     Dosage: TRANSFORAMINAL EPIDURAL INJECTION
     Route: 008

REACTIONS (3)
  - Chorioretinopathy [Not Recovered/Not Resolved]
  - Serous retinal detachment [Not Recovered/Not Resolved]
  - Blindness [Not Recovered/Not Resolved]
